FAERS Safety Report 13681757 (Version 1)
Quarter: 2017Q2

REPORT INFORMATION
  Report Type: Spontaneous
  Country: US (occurrence: US)
  Receive Date: 20170622
  Receipt Date: 20170622
  Transmission Date: 20170830
  Serious: Yes (Life-Threatening, Hospitalization, Disabling)
  Sender: FDA-Public Use
  Company Number: None

PATIENT
  Age: 29 Year
  Sex: Male
  Weight: 69.75 kg

DRUGS (5)
  1. XANAX [Suspect]
     Active Substance: ALPRAZOLAM
     Indication: ANXIETY
     Route: 048
  2. XANAX [Suspect]
     Active Substance: ALPRAZOLAM
     Indication: STRESS
     Route: 048
  3. VALIUM [Suspect]
     Active Substance: DIAZEPAM
     Indication: DRUG THERAPY
     Route: 048
     Dates: start: 20120801, end: 20160601
  4. NATURE-THROID [Concomitant]
     Active Substance: THYROID, PORCINE
  5. PROZAC [Concomitant]
     Active Substance: FLUOXETINE HYDROCHLORIDE

REACTIONS (10)
  - Depression [None]
  - Weight decreased [None]
  - Anxiety [None]
  - Panic attack [None]
  - Gastrointestinal disorder [None]
  - Dyspnoea [None]
  - Agoraphobia [None]
  - Phobia [None]
  - Fatigue [None]
  - Intrusive thoughts [None]

NARRATIVE: CASE EVENT DATE: 20110501
